FAERS Safety Report 16898656 (Version 1)
Quarter: 2019Q4

REPORT INFORMATION
  Report Type: Spontaneous
  Country: US (occurrence: US)
  Receive Date: 20190815
  Receipt Date: 20190815
  Transmission Date: 20200122
  Serious: Yes (Hospitalization)
  Sender: FDA-Public Use
  Company Number: None

PATIENT
  Age: 66 Year
  Sex: Female

DRUGS (2)
  1. LEVOTHYROXIN [Concomitant]
     Active Substance: LEVOTHYROXINE
     Dosage: ?          OTHER DOSE:267MG TAB;?
     Route: 048
     Dates: start: 20190419
  2. ESBRIET [Suspect]
     Active Substance: PIRFENIDONE

REACTIONS (2)
  - Vomiting [None]
  - Blood glucose increased [None]

NARRATIVE: CASE EVENT DATE: 20190811
